FAERS Safety Report 17266061 (Version 1)
Quarter: 2020Q1

REPORT INFORMATION
  Report Type: Spontaneous
  Country: US (occurrence: US)
  Receive Date: 20200114
  Receipt Date: 20200114
  Transmission Date: 20200409
  Serious: No
  Sender: FDA-Public Use
  Company Number: NVSC2020US006796

PATIENT
  Sex: Male

DRUGS (2)
  1. HYCAMTIN [Suspect]
     Active Substance: TOPOTECAN HYDROCHLORIDE
     Dosage: 0.75 MG, QD (0.25 MG)
     Route: 048
     Dates: start: 201911
  2. HYCAMTIN [Suspect]
     Active Substance: TOPOTECAN HYDROCHLORIDE
     Indication: PULMONARY FIBROSIS
     Dosage: 4 MG, QD (1 MG)
     Route: 048
     Dates: start: 201911

REACTIONS (1)
  - Nausea [Unknown]
